FAERS Safety Report 13092780 (Version 1)
Quarter: 2017Q1

REPORT INFORMATION
  Report Type: Spontaneous
  Country: US (occurrence: US)
  Receive Date: 20170105
  Receipt Date: 20170105
  Transmission Date: 20170428
  Serious: Yes (Other)
  Sender: FDA-Public Use
  Company Number: None

PATIENT
  Age: 54 Year
  Sex: Female
  Weight: 54.9 kg

DRUGS (9)
  1. AZELASTINE [Concomitant]
     Active Substance: AZELASTINE
  2. FLUTICASONE. [Concomitant]
     Active Substance: FLUTICASONE
  3. UNSPECIFIED INGREDIENT [Concomitant]
     Active Substance: UNSPECIFIED INGREDIENT
  4. ASPIRIN. [Concomitant]
     Active Substance: ASPIRIN
  5. FLOVENT [Concomitant]
     Active Substance: FLUTICASONE PROPIONATE
  6. CLARITIN-D 12 HOUR [Concomitant]
     Active Substance: LORATADINE\PSEUDOEPHEDRINE SULFATE
  7. HYDROCODON-ACETAMINOPHN 10-325 MALLINCKRODT PH OBLONG WHITGE M367 [Suspect]
     Active Substance: ACETAMINOPHEN\HYDROCODONE
     Indication: MUSCULOSKELETAL PAIN
     Dosage: ?          QUANTITY:60 TABLET(S);?
     Route: 048
     Dates: start: 20161201, end: 20170105
  8. VENTOLIN [Concomitant]
     Active Substance: ALBUTEROL SULFATE
  9. ALPIRAZOLAM [Concomitant]

REACTIONS (7)
  - Gastric disorder [None]
  - Somnolence [None]
  - Fatigue [None]
  - Drug ineffective [None]
  - Abdominal distension [None]
  - Asthenia [None]
  - Migraine [None]

NARRATIVE: CASE EVENT DATE: 20161201
